FAERS Safety Report 7611075-0 (Version None)
Quarter: 2011Q3

REPORT INFORMATION
  Report Type: 
  Country: None (occurrence: None)
  Receive Date: 20110715
  Receipt Date: 20110707
  Transmission Date: 20111222
  Serious: No
  Sender: FDA-Public Use
  Company Number: US-B.I. PHARMACEUTICALS,INC./RIDGEFIELD-2011-BP-17294BP

PATIENT
  Sex: Female

DRUGS (17)
  1. CLONAZEPAM [Concomitant]
     Indication: SLEEP DISORDER
     Dosage: 0.5 MG
  2. SUMATRIPTAN SUCCINATE [Concomitant]
     Indication: MIGRAINE
     Dosage: 50 MG
  3. ZITHROMAX [Concomitant]
     Indication: LYME DISEASE
     Dosage: 500 MG
  4. VALACYCLOVIR [Concomitant]
     Indication: ORAL HERPES
     Dosage: 500 MG
  5. GABAPENTIN [Concomitant]
     Indication: MIGRAINE
     Dosage: 100 MG
  6. ZOLPIDEM [Concomitant]
     Indication: SLEEP DISORDER
     Dosage: 10 MG
  7. MEPRON [Concomitant]
     Indication: BABESIOSIS
  8. MEPRON [Concomitant]
     Indication: LYME DISEASE
  9. HYDROXYCHLOROQUINE SULFATE [Concomitant]
     Indication: LYME DISEASE
     Dosage: 400 MG
  10. PRADAXA [Suspect]
     Indication: VENOUS OCCLUSION
     Dosage: 300 MG
     Route: 048
     Dates: start: 20110629
  11. PRILOSEC [Concomitant]
     Indication: GASTROOESOPHAGEAL REFLUX DISEASE
  12. XIFAXAN [Concomitant]
     Indication: ILEUS PARALYTIC
     Dosage: 200 MG
  13. TOPIRAMATE [Concomitant]
     Indication: MIGRAINE
     Dosage: 25 MG
  14. MINOCYCLINE HCL [Concomitant]
     Indication: LYME DISEASE
  15. NYSTATIN [Concomitant]
     Indication: PROPHYLAXIS
     Route: 048
  16. SERTRALINE HYDROCHLORIDE [Concomitant]
     Indication: SLEEP DISORDER
     Dosage: 100 MG
  17. NORTRIPTYLINE HCL [Concomitant]
     Indication: MIGRAINE
     Dosage: 10 MG

REACTIONS (1)
  - OEDEMA PERIPHERAL [None]
